FAERS Safety Report 7983451-8 (Version None)
Quarter: 2011Q4

REPORT INFORMATION
  Report Type: 
  Country: None (occurrence: None)
  Receive Date: 20111215
  Receipt Date: 20111107
  Transmission Date: 20120403
  Serious: No
  Sender: FDA-Public Use
  Company Number: US-BAYER-2011-108156

PATIENT
  Age: 35 Year
  Sex: Female

DRUGS (1)
  1. FINACEA [Suspect]
     Dosage: STARTED TWICE A DAY AND THEN ONCE A DAY FOR A WEEK AND THEN TWICE A DAY.
     Dates: start: 20110925

REACTIONS (9)
  - APPLICATION SITE EXFOLIATION [None]
  - BURNING SENSATION [None]
  - SKIN IRRITATION [None]
  - APPLICATION SITE DRYNESS [None]
  - DERMATITIS CONTACT [None]
  - DERMATITIS [None]
  - ROSACEA [None]
  - APPLICATION SITE ERYTHEMA [None]
  - ACNE [None]
